FAERS Safety Report 6955852-8 (Version None)
Quarter: 2010Q3

REPORT INFORMATION
  Report Type: 
  Country: None (occurrence: None)
  Receive Date: 20100830
  Receipt Date: 20100818
  Transmission Date: 20110219
  Serious: Yes (Other)
  Sender: FDA-Public Use
  Company Number: IT-WATSON-2010-11272

PATIENT
  Age: 40 Year
  Sex: Male

DRUGS (2)
  1. RAMIPRIL [Suspect]
     Indication: NEPHROTIC SYNDROME
     Dosage: 2.5 MG, DAILY
     Route: 065
     Dates: start: 20080101
  2. LOSARTAN [Suspect]
     Indication: NEPHROTIC SYNDROME
     Dosage: 50 MG, DAILY
     Route: 065

REACTIONS (2)
  - HEPATIC ENCEPHALOPATHY [None]
  - LOSS OF CONSCIOUSNESS [None]
